FAERS Safety Report 9433814 (Version 2)
Quarter: 2013Q3

REPORT INFORMATION
  Report Type: Report from Study
  Country: AR (occurrence: AR)
  Receive Date: 20130731
  Receipt Date: 20130912
  Transmission Date: 20140515
  Serious: Yes (Other)
  Sender: FDA-Public Use
  Company Number: PHHY2013AR081093

PATIENT
  Sex: Male

DRUGS (1)
  1. DIOVAN [Suspect]
     Indication: HYPERTENSION
     Dosage: 1 DF, (80 MG) DAILY
     Route: 048

REACTIONS (3)
  - Coronary artery occlusion [Recovering/Resolving]
  - Chronic obstructive pulmonary disease [Unknown]
  - Emphysema [Unknown]
